FAERS Safety Report 24023373 (Version 2)
Quarter: 2024Q3

REPORT INFORMATION
  Report Type: Spontaneous
  Country: US (occurrence: US)
  Receive Date: 20240627
  Receipt Date: 20240710
  Transmission Date: 20241017
  Serious: No
  Sender: ROCHE
  Company Number: US-ROCHE-3462862

PATIENT
  Age: 40 Year
  Sex: Female

DRUGS (2)
  1. ALECENSA [Suspect]
     Active Substance: ALECTINIB HYDROCHLORIDE
     Indication: Non-small cell lung cancer
     Dosage: 4 PILLS, TWICE A DAY ;ONGOING: NO
     Route: 048
  2. ALECENSA [Suspect]
     Active Substance: ALECTINIB HYDROCHLORIDE
     Indication: Neoplasm malignant
     Dosage: 3 PILLS, TWICE PER DAY ;ONGOING: NO
     Route: 048

REACTIONS (5)
  - Rash [Recovered/Resolved]
  - Weight increased [Not Recovered/Not Resolved]
  - Blood lactic acid increased [Unknown]
  - Movement disorder [Unknown]
  - Pain [Unknown]
